FAERS Safety Report 15103203 (Version 4)
Quarter: 2018Q4

REPORT INFORMATION
  Report Type: Spontaneous
  Country: AT (occurrence: AT)
  Receive Date: 20180703
  Receipt Date: 20181203
  Transmission Date: 20190204
  Serious: Yes (Hospitalization, Other)
  Sender: FDA-Public Use
  Company Number: AT-CELGENEUS-AUT-20180607900

PATIENT
  Age: 51 Year
  Sex: Male
  Weight: 95 kg

DRUGS (2)
  1. OTEZLA [Suspect]
     Active Substance: APREMILAST
     Indication: PSORIASIS
     Route: 048
     Dates: start: 201801, end: 20180607
  2. DICLOVIT [Concomitant]
     Indication: PARAESTHESIA
     Route: 065

REACTIONS (3)
  - Panic attack [Recovered/Resolved]
  - Guillain-Barre syndrome [Recovered/Resolved]
  - Adjustment disorder with depressed mood [Recovered/Resolved]

NARRATIVE: CASE EVENT DATE: 20180508
